FAERS Safety Report 20091038 (Version 8)
Quarter: 2024Q1

REPORT INFORMATION
  Report Type: Spontaneous
  Country: US (occurrence: US)
  Receive Date: 20211119
  Receipt Date: 20240108
  Transmission Date: 20240410
  Serious: No
  Sender: FDA-Public Use
  Company Number: US-PFIZER INC-2021534670

PATIENT
  Age: 70 Year
  Sex: Female

DRUGS (1)
  1. XELJANZ [Suspect]
     Active Substance: TOFACITINIB CITRATE
     Indication: Rheumatoid arthritis
     Dosage: 5 MG, 2X/DAY
     Route: 048

REACTIONS (8)
  - Sinusitis [Unknown]
  - Limb injury [Unknown]
  - Impaired healing [Unknown]
  - Hypersensitivity [Unknown]
  - Depression [Unknown]
  - Stress [Unknown]
  - Palpitations [Unknown]
  - Intercepted product prescribing error [Unknown]
